FAERS Safety Report 12607032 (Version 1)
Quarter: 2016Q3

REPORT INFORMATION
  Report Type: Spontaneous
  Country: FR (occurrence: FR)
  Receive Date: 20160729
  Receipt Date: 20160729
  Transmission Date: 20161109
  Serious: Yes (Other)
  Sender: FDA-Public Use
  Company Number: FR-PFIZER INC-3010232

PATIENT
  Age: 18 Year
  Sex: Male

DRUGS (13)
  1. CARBOPLATINE HOSPIRA [Suspect]
     Active Substance: CARBOPLATIN
     Dosage: 1000 MG, CYCLIC
     Dates: start: 20141209
  2. PLITICAN [Concomitant]
     Active Substance: ALIZAPRIDE HYDROCHLORIDE
  3. CARBOPLATINE HOSPIRA [Suspect]
     Active Substance: CARBOPLATIN
     Dosage: 1000 MG, CYCLIC
     Dates: start: 20150417
  4. ZOPHREN /00955301/ [Concomitant]
     Active Substance: ONDANSETRON
     Route: 041
  5. CARBOPLATINE HOSPIRA [Suspect]
     Active Substance: CARBOPLATIN
     Dosage: 1000 MG, CYCLIC
     Dates: start: 20150203
  6. CARBOPLATINE HOSPIRA [Suspect]
     Active Substance: CARBOPLATIN
     Dosage: 1000 MG, CYCLIC
     Dates: start: 20150304
  7. BACTRIM [Concomitant]
     Active Substance: SULFAMETHOXAZOLE\TRIMETHOPRIM
     Route: 048
  8. CARBOPLATINE HOSPIRA [Suspect]
     Active Substance: CARBOPLATIN
     Dosage: 1000 MG, CYCLIC
     Dates: start: 20150106
  9. CARBOPLATINE HOSPIRA [Suspect]
     Active Substance: CARBOPLATIN
     Dosage: 1000 MG, CYCLIC
     Dates: start: 20150203
  10. CARBOPLATINE HOSPIRA [Suspect]
     Active Substance: CARBOPLATIN
     Dosage: 1000 MG, CYCLIC
     Route: 041
     Dates: start: 20150515, end: 20150515
  11. VINCRISTINE SULFATE. [Concomitant]
     Active Substance: VINCRISTINE SULFATE
     Route: 041
  12. CARBOPLATINE HOSPIRA [Suspect]
     Active Substance: CARBOPLATIN
     Indication: GLIOMA
     Dosage: 1000 MG, CYCLIC
     Dates: start: 20141021
  13. CARBOPLATINE HOSPIRA [Suspect]
     Active Substance: CARBOPLATIN
     Dosage: 1000 MG, CYCLIC
     Dates: start: 20141113

REACTIONS (5)
  - Hypersensitivity [Recovered/Resolved]
  - Blood pressure decreased [Recovered/Resolved]
  - Hypoxia [Recovered/Resolved]
  - Presyncope [Recovered/Resolved]
  - Malaise [Recovered/Resolved]

NARRATIVE: CASE EVENT DATE: 20150515
